FAERS Safety Report 21702742 (Version 1)
Quarter: 2022Q4

REPORT INFORMATION
  Report Type: Spontaneous
  Country: CN (occurrence: CN)
  Receive Date: 20221209
  Receipt Date: 20221209
  Transmission Date: 20230113
  Serious: Yes (Other)
  Sender: FDA-Public Use
  Company Number: CN-BAYER-2022A166960

PATIENT
  Age: 42 Year
  Sex: Male
  Weight: 78 kg

DRUGS (3)
  1. XARELTO [Suspect]
     Active Substance: RIVAROXABAN
     Indication: Deep vein thrombosis
     Dosage: 10 MG, QD
     Route: 048
     Dates: start: 20221016, end: 20221027
  2. XARELTO [Suspect]
     Active Substance: RIVAROXABAN
     Indication: Anticoagulant therapy
  3. ASPIRIN [Suspect]
     Active Substance: ASPIRIN
     Indication: Cerebral infarction
     Dosage: 100 MG, QD
     Route: 048
     Dates: start: 20221027, end: 20221108

REACTIONS (8)
  - Gingival bleeding [Recovering/Resolving]
  - Haemorrhage urinary tract [Recovering/Resolving]
  - Coagulopathy [Recovering/Resolving]
  - Ecchymosis [Unknown]
  - Prescribed underdose [Unknown]
  - Underdose [Unknown]
  - Inappropriate schedule of product administration [Unknown]
  - Product prescribing issue [Unknown]

NARRATIVE: CASE EVENT DATE: 20220101
